FAERS Safety Report 18147168 (Version 2)
Quarter: 2020Q3

REPORT INFORMATION
  Report Type: Spontaneous
  Country: US (occurrence: US)
  Receive Date: 20200814
  Receipt Date: 20200817
  Transmission Date: 20201103
  Serious: Yes (Life-Threatening, Hospitalization, Disabling, Other)
  Sender: FDA-Public Use
  Company Number: US-JNJFOC-20200818648

PATIENT

DRUGS (1)
  1. PARACETAMOL [Suspect]
     Active Substance: ACETAMINOPHEN
     Indication: PRODUCT USED FOR UNKNOWN INDICATION
     Route: 048

REACTIONS (14)
  - Poisoning deliberate [Unknown]
  - Nausea [Unknown]
  - Abdominal pain [Unknown]
  - Disseminated intravascular coagulation [Unknown]
  - Confusional state [Unknown]
  - Hypoglycaemia [Unknown]
  - Acid base balance abnormal [Unknown]
  - Liver injury [Unknown]
  - Suicide attempt [Unknown]
  - Cardiovascular disorder [Unknown]
  - Oesophageal stenosis [Unknown]
  - Gastrointestinal disorder [Unknown]
  - Sinus tachycardia [Unknown]
  - Vomiting [Unknown]
